FAERS Safety Report 5075150-X (Version None)
Quarter: 2006Q3

REPORT INFORMATION
  Report Type: 
  Country: None (occurrence: None)
  Receive Date: 20060809
  Receipt Date: 20060803
  Transmission Date: 20061208
  Serious: Yes (Hospitalization)
  Sender: FDA-Public Use
  Company Number: IE-AVENTIS-200618139GDDC

PATIENT
  Age: 62 Year
  Sex: Male

DRUGS (7)
  1. LANTUS [Suspect]
     Indication: DIABETES MELLITUS
     Route: 058
     Dates: start: 20060421
  2. ASPIRIN [Concomitant]
     Indication: ANTICOAGULANT THERAPY
     Route: 048
     Dates: start: 20031001
  3. GLUCOPHAGE [Concomitant]
     Indication: DIABETES MELLITUS NON-INSULIN-DEPENDENT
     Route: 048
     Dates: start: 19981012
  4. ISTIN [Concomitant]
     Indication: ANGINA PECTORIS
     Route: 048
     Dates: start: 20041206
  5. LIPITOR [Concomitant]
     Indication: LIPIDS ABNORMAL
     Route: 048
     Dates: start: 20040129
  6. MICARDIS [Concomitant]
     Indication: HYPERTENSION
     Route: 048
     Dates: start: 20040129
  7. AMOXICILLIN AND CLAVULANIC ACID [Concomitant]
     Indication: PHARYNGITIS
     Route: 048
     Dates: start: 20060606, end: 20060613

REACTIONS (3)
  - BLOOD GLUCOSE INCREASED [None]
  - HOSPITALISATION [None]
  - ILL-DEFINED DISORDER [None]
